FAERS Safety Report 4690877-7 (Version None)
Quarter: 2005Q2

REPORT INFORMATION
  Report Type: 
  Country: None (occurrence: None)
  Receive Date: 20050614
  Receipt Date: 20050603
  Transmission Date: 20051028
  Serious: Yes (Death, Hospitalization)
  Sender: FDA-Public Use
  Company Number: CLOF-10012

PATIENT
  Age: 70 Year
  Sex: Female

DRUGS (10)
  1. CLOFARABINE [Suspect]
     Indication: ACUTE MYELOID LEUKAEMIA
     Dosage: 48 MG QD X 5 IV
     Route: 042
     Dates: start: 20050404, end: 20050512
  2. ACYCLOVIR [Concomitant]
  3. CIPROFLOXACIN [Concomitant]
  4. FLUCONAZOLE [Concomitant]
  5. COTRIM [Concomitant]
  6. DOMPERIDONE [Concomitant]
  7. LORAZEPAM [Concomitant]
  8. GRANISETRON [Concomitant]
  9. DIHYDROCODEINE [Concomitant]
  10. BENDROFLUAZIDE [Concomitant]

REACTIONS (31)
  - AGITATION [None]
  - ARTHRALGIA [None]
  - ASTHENIA [None]
  - BLISTER [None]
  - BLOOD CULTURE POSITIVE [None]
  - CONFUSIONAL STATE [None]
  - CULTURE URINE POSITIVE [None]
  - DEPRESSED LEVEL OF CONSCIOUSNESS [None]
  - DERMATITIS BULLOUS [None]
  - DIARRHOEA [None]
  - DRY MOUTH [None]
  - DRY SKIN [None]
  - DYSGEUSIA [None]
  - DYSPHAGIA [None]
  - ENTEROCOCCAL INFECTION [None]
  - ERYTHEMA [None]
  - FACE OEDEMA [None]
  - FATIGUE [None]
  - NAUSEA [None]
  - OBSTRUCTIVE AIRWAYS DISORDER [None]
  - OEDEMA PERIPHERAL [None]
  - ORAL INTAKE REDUCED [None]
  - RASH MACULAR [None]
  - RENAL FAILURE [None]
  - RESPIRATORY RATE DECREASED [None]
  - SKIN EXFOLIATION [None]
  - SOMNOLENCE [None]
  - STAPHYLOCOCCAL INFECTION [None]
  - STRESS [None]
  - SWOLLEN TONGUE [None]
  - VOMITING [None]
